FAERS Safety Report 4578253-9 (Version None)
Quarter: 2005Q1

REPORT INFORMATION
  Report Type: 
  Country: None (occurrence: None)
  Receive Date: 20050211
  Receipt Date: 20050207
  Transmission Date: 20050727
  Serious: Yes (Other)
  Sender: FDA-Public Use
  Company Number: US-JNJFOC-20040600989

PATIENT
  Age: 58 Year
  Sex: Male

DRUGS (6)
  1. DURAGESIC [Suspect]
     Route: 062
  2. DURAGESIC [Suspect]
     Route: 062
  3. DARVOCET [Suspect]
  4. DARVOCET [Suspect]
     Indication: DRUG USE FOR UNKNOWN INDICATION
  5. PERCOCET [Concomitant]
  6. PERCOCET [Concomitant]

REACTIONS (11)
  - ALCOHOL USE [None]
  - COMA [None]
  - DYSPNOEA [None]
  - IMPAIRED DRIVING ABILITY [None]
  - LOSS OF CONSCIOUSNESS [None]
  - MULTIPLE DRUG OVERDOSE [None]
  - RESPIRATORY ARREST [None]
  - RESPIRATORY DISORDER [None]
  - SOMNOLENCE [None]
  - THROAT TIGHTNESS [None]
  - UNRESPONSIVE TO PAIN STIMULI [None]
